FAERS Safety Report 23097603 (Version 1)
Quarter: 2023Q4

REPORT INFORMATION
  Report Type: Report from Study
  Country: US (occurrence: US)
  Receive Date: 20231023
  Receipt Date: 20231023
  Transmission Date: 20240110
  Serious: Yes (Other)
  Sender: FDA-Public Use
  Company Number: US-MYLANLABS-2019018120

PATIENT
  Sex: Female

DRUGS (1)
  1. LYRICA [Suspect]
     Active Substance: PREGABALIN
     Indication: Product used for unknown indication
     Dosage: 300 MILLIGRAM, BID, (1 CAPSULE)  2X/DAY)
     Route: 048

REACTIONS (4)
  - Drug dependence [Unknown]
  - Wheezing [Unknown]
  - Dizziness [Unknown]
  - Malaise [Unknown]
